FAERS Safety Report 8129081-9 (Version None)
Quarter: 2012Q1

REPORT INFORMATION
  Report Type: 
  Country: None (occurrence: None)
  Receive Date: 20120210
  Receipt Date: 20111213
  Transmission Date: 20120608
  Serious: No
  Sender: FDA-Public Use
  Company Number: US-BRISTOL-MYERS SQUIBB COMPANY-16055444

PATIENT
  Sex: Female

DRUGS (1)
  1. ORENCIA [Suspect]
     Dosage: TOTAL INF:3: 1ST :15AUG2011, SECOND-DATE UNKNOWN, 3RD: 10SEP2011. LAST INF:18NOV2011
     Route: 042

REACTIONS (1)
  - GAIT DISTURBANCE [None]
